FAERS Safety Report 20203836 (Version 3)
Quarter: 2023Q4

REPORT INFORMATION
  Report Type: Spontaneous
  Country: US (occurrence: US)
  Receive Date: 20211219
  Receipt Date: 20231009
  Transmission Date: 20240110
  Serious: Yes (Other)
  Sender: FDA-Public Use
  Company Number: US-JNJFOC-20211107699

PATIENT
  Age: 59 Year
  Sex: Female

DRUGS (4)
  1. ELMIRON [Suspect]
     Active Substance: PENTOSAN POLYSULFATE SODIUM
     Indication: Cystitis interstitial
     Route: 048
     Dates: start: 20090727, end: 20101021
  2. ACETAMINOPHEN\HYDROCODONE [Concomitant]
     Active Substance: ACETAMINOPHEN\HYDROCODONE
     Indication: Pain management
     Dates: start: 202012, end: 202104
  3. ZEASORB AF [Concomitant]
     Active Substance: MICONAZOLE NITRATE
     Indication: Antifungal prophylaxis
     Route: 061
     Dates: start: 201010, end: 201510
  4. LATANOPROST [Concomitant]
     Active Substance: LATANOPROST
     Indication: Glaucoma
     Dates: start: 202001

REACTIONS (3)
  - Dry age-related macular degeneration [Not Recovered/Not Resolved]
  - Vitreous detachment [Not Recovered/Not Resolved]
  - Pathologic myopia [Not Recovered/Not Resolved]

NARRATIVE: CASE EVENT DATE: 20131201
